FAERS Safety Report 4740658-0 (Version None)
Quarter: 2005Q3

REPORT INFORMATION
  Report Type: 
  Country: None (occurrence: None)
  Receive Date: 20050801
  Receipt Date: 20050630
  Transmission Date: 20060218
  Serious: No
  Sender: FDA-Public Use
  Company Number: 2005PV000204

PATIENT
  Age: 61 Year
  Sex: Female
  Weight: 115.2136 kg

DRUGS (12)
  1. BYETTA [Suspect]
     Indication: DIABETES MELLITUS NON-INSULIN-DEPENDENT
     Dosage: 5 UG; BID; SC
     Route: 058
     Dates: start: 20050629
  2. AVANDAMET [Concomitant]
  3. REGULAR INSULIN [Concomitant]
  4. SYNTHROID [Concomitant]
  5. LEVAQUIN [Concomitant]
  6. ASPIRIN [Concomitant]
  7. MULTIVITAMINS PLUS IRON [Concomitant]
  8. FOLIC ACID [Concomitant]
  9. ASCORBIC ACID [Concomitant]
  10. STOOL SOFTENER [Concomitant]
  11. LASIX [Concomitant]
  12. ADVIL [Concomitant]

REACTIONS (2)
  - DIZZINESS [None]
  - NAUSEA [None]
